FAERS Safety Report 9049626 (Version 4)
Quarter: 2013Q1

REPORT INFORMATION
  Report Type: Spontaneous
  Country: US (occurrence: US)
  Receive Date: 20130205
  Receipt Date: 20130329
  Transmission Date: 20140127
  Serious: Yes (Other)
  Sender: FDA-Public Use
  Company Number: US-PFIZER INC-2013037426

PATIENT
  Age: 50 Year
  Sex: Female
  Weight: 59 kg

DRUGS (8)
  1. ESTRING [Suspect]
     Indication: VULVOVAGINAL DRYNESS
     Dosage: 2 MG, UNK
     Route: 067
     Dates: start: 20120615, end: 20121022
  2. ESTRING [Suspect]
     Indication: HOT FLUSH
     Dosage: UNK
     Dates: start: 20121203, end: 20130124
  3. ESTRING [Suspect]
     Indication: ATROPHIC VULVOVAGINITIS
  4. ESTRACE [Suspect]
     Indication: VULVOVAGINAL DRYNESS
     Dosage: 2 G,INTRAVAGINAL TIW
     Route: 067
     Dates: start: 20121022, end: 20130128
  5. ESTRACE [Suspect]
     Indication: HOT FLUSH
  6. VAGIFEM [Suspect]
     Indication: VULVOVAGINAL DRYNESS
     Dosage: 1 INSERT BIW
     Route: 067
     Dates: start: 20130128
  7. VAGIFEM [Suspect]
     Indication: HOT FLUSH
  8. METHIMAZOLE [Concomitant]
     Indication: BASEDOW^S DISEASE
     Dosage: UNK

REACTIONS (6)
  - Basedow^s disease [Unknown]
  - Blood bilirubin increased [Unknown]
  - Blood oestrogen increased [Unknown]
  - Liver disorder [Unknown]
  - Liver function test abnormal [Unknown]
  - Thyroid disorder [Unknown]
